FAERS Safety Report 14234640 (Version 3)
Quarter: 2017Q4

REPORT INFORMATION
  Report Type: Spontaneous
  Country: US (occurrence: US)
  Receive Date: 20171129
  Receipt Date: 20171212
  Transmission Date: 20180321
  Serious: Yes (Death, Life-Threatening, Hospitalization, Other)
  Sender: FDA-Public Use
  Company Number: US-009507513-1711USA011649

PATIENT
  Age: 5 Month
  Sex: Female
  Weight: 1.87 kg

DRUGS (14)
  1. FLUTICASONE. [Suspect]
     Active Substance: FLUTICASONE
     Dosage: UNK
  2. SODIUM CHLORIDE. [Concomitant]
     Active Substance: SODIUM CHLORIDE
     Dosage: UNK
  3. FUROSEMIDE. [Suspect]
     Active Substance: FUROSEMIDE
     Dosage: UNK
     Route: 048
  4. METOCLOPRAMIDE. [Concomitant]
     Active Substance: METOCLOPRAMIDE
     Dosage: UNK
  5. DEXAMETHASONE. [Suspect]
     Active Substance: DEXAMETHASONE
     Dosage: UNK
     Route: 048
  6. IPRATROPIUM BROMIDE. [Concomitant]
     Active Substance: IPRATROPIUM BROMIDE
     Dosage: UNK
     Route: 055
  7. MIDAZOLAM [Concomitant]
     Active Substance: MIDAZOLAM HYDROCHLORIDE
     Dosage: UNK
  8. LORAZEPAM. [Concomitant]
     Active Substance: LORAZEPAM
     Dosage: UNK, INTERMITTENT
  9. SPIRONOLACTONE. [Suspect]
     Active Substance: SPIRONOLACTONE
     Dosage: UNK
  10. HYDRODIURIL [Suspect]
     Active Substance: HYDROCHLOROTHIAZIDE
     Dosage: UNK
  11. LANSOPRAZOLE. [Concomitant]
     Active Substance: LANSOPRAZOLE
     Dosage: UNK
  12. OXYGEN. [Concomitant]
     Active Substance: OXYGEN
     Dosage: UNK
  13. POTASSIUM CHLORIDE. [Concomitant]
     Active Substance: POTASSIUM CHLORIDE
     Dosage: UNK
  14. MORPHINE SULFATE. [Concomitant]
     Active Substance: MORPHINE SULFATE
     Dosage: INTERMITTENT

REACTIONS (15)
  - Osteopenia [Unknown]
  - Cor pulmonale [Unknown]
  - Substance-induced psychotic disorder [Unknown]
  - Hyponatraemia [Unknown]
  - Drug dependence [Unknown]
  - Nephrocalcinosis [Unknown]
  - Hypocalcaemia [Unknown]
  - Hypochloraemia [Unknown]
  - Pathological fracture [Unknown]
  - Pulmonary hypertension [Fatal]
  - Hypokalaemia [Unknown]
  - Nephrolithiasis [Unknown]
  - Hypertension [Fatal]
  - Abnormal behaviour [Unknown]
  - Hypertrophic cardiomyopathy [Unknown]
